FAERS Safety Report 23426730 (Version 1)
Quarter: 2024Q1

REPORT INFORMATION
  Report Type: Spontaneous
  Country: DE (occurrence: DE)
  Receive Date: 20240122
  Receipt Date: 20240122
  Transmission Date: 20240410
  Serious: Yes (Hospitalization, Other)
  Sender: FDA-Public Use
  Company Number: DE-EMBRYOTOX-202305847

PATIENT
  Age: 1 Day
  Sex: Male
  Weight: 2.17 kg

DRUGS (4)
  1. QUETIAPINE [Suspect]
     Active Substance: QUETIAPINE
     Indication: Product used for unknown indication
     Dosage: 50 [MG/D ]
     Route: 064
     Dates: start: 20220903, end: 20230520
  2. FLUOXETINE [Suspect]
     Active Substance: FLUOXETINE HYDROCHLORIDE
     Indication: Product used for unknown indication
     Dosage: 60 [MG/D ] 3 SEPARATED DOSES
     Route: 064
     Dates: start: 20220903, end: 20230520
  3. METOPROLOL [Suspect]
     Active Substance: METOPROLOL
     Indication: Product used for unknown indication
     Dosage: 142.5 [MG/D ]/ 95 - 0 - 47.5 MG DAILY
     Route: 064
     Dates: start: 20220903, end: 20230520
  4. FOLIC ACID [Concomitant]
     Active Substance: FOLIC ACID
     Indication: Product used for unknown indication
     Route: 064

REACTIONS (8)
  - Oxygen saturation decreased [Recovered/Resolved]
  - Bradycardia neonatal [Recovered/Resolved]
  - Temperature regulation disorder [Recovered/Resolved]
  - Small for dates baby [Recovered/Resolved]
  - Hypotonia [Recovered/Resolved]
  - Hypoglycaemia neonatal [Recovered/Resolved]
  - Neonatal respiratory distress syndrome [Recovered/Resolved]
  - Foetal exposure during pregnancy [Unknown]

NARRATIVE: CASE EVENT DATE: 20230501
